FAERS Safety Report 5506812-5 (Version None)
Quarter: 2007Q4

REPORT INFORMATION
  Report Type: 
  Country: None (occurrence: None)
  Receive Date: 20071105
  Receipt Date: 20071024
  Transmission Date: 20080405
  Serious: Yes (Other)
  Sender: FDA-Public Use
  Company Number: JP-SHR-JP-2007-040958

PATIENT
  Age: 71 Year
  Sex: Female

DRUGS (1)
  1. PROSCOPE 300 [Suspect]
     Indication: COMPUTERISED TOMOGRAM ABDOMEN
     Dosage: 3 ML/SEC, BOLUS
     Route: 042
     Dates: start: 20071024, end: 20071024

REACTIONS (1)
  - SHOCK [None]
